FAERS Safety Report 6501499-7 (Version None)
Quarter: 2009Q4

REPORT INFORMATION
  Report Type: 
  Country: None (occurrence: None)
  Receive Date: 20091216
  Receipt Date: 20091211
  Transmission Date: 20100525
  Serious: Yes (Other)
  Sender: FDA-Public Use
  Company Number: A0812968A

PATIENT
  Age: 61 Year
  Sex: Female

DRUGS (9)
  1. FLOVENT [Suspect]
     Indication: CHRONIC OBSTRUCTIVE PULMONARY DISEASE
     Dosage: 2PUFF TWICE PER DAY
     Route: 055
     Dates: start: 20030101
  2. PULMICORT [Suspect]
  3. DUONEB [Suspect]
  4. FLUCONAZOLE [Concomitant]
  5. DICYCLOMINE [Concomitant]
  6. PROTONIX [Concomitant]
  7. FUROSEMIDE [Concomitant]
  8. KLOR-CON [Concomitant]
  9. LORAZEPAM [Concomitant]

REACTIONS (7)
  - BREATH SOUNDS ABNORMAL [None]
  - CHRONIC OBSTRUCTIVE PULMONARY DISEASE [None]
  - LUNG DISORDER [None]
  - MALAISE [None]
  - PNEUMONIA [None]
  - SPUTUM INCREASED [None]
  - THERAPEUTIC RESPONSE DECREASED [None]
